FAERS Safety Report 17598592 (Version 1)
Quarter: 2020Q1

REPORT INFORMATION
  Report Type: Spontaneous
  Country: US (occurrence: US)
  Receive Date: 20200329
  Receipt Date: 20200329
  Transmission Date: 20200409
  Serious: Yes (Disabling)
  Sender: FDA-Public Use
  Company Number: None

PATIENT
  Age: 39 Year
  Sex: Female
  Weight: 83.25 kg

DRUGS (12)
  1. HYDROXYCHLOROQUINE 200MG TAB [Suspect]
     Active Substance: HYDROXYCHLOROQUINE SULFATE
     Indication: CONNECTIVE TISSUE DISORDER
     Dates: start: 20200304
  2. IRON [Concomitant]
     Active Substance: IRON
  3. VITAMIND3 [Concomitant]
  4. TYLENOL [Concomitant]
     Active Substance: ACETAMINOPHEN
  5. GUAIFENESIN. [Concomitant]
     Active Substance: GUAIFENESIN
  6. MVI [Concomitant]
     Active Substance: VITAMINS
  7. TURMERIC [Concomitant]
     Active Substance: HERBALS\TURMERIC
  8. ALEVE [Concomitant]
     Active Substance: NAPROXEN SODIUM
  9. PSEUDOEPHEDRINE. [Concomitant]
     Active Substance: PSEUDOEPHEDRINE HYDROCHLORIDE
  10. OMEPRAZOLE. [Concomitant]
     Active Substance: OMEPRAZOLE
  11. HYDROXYCHLOROQUININE [Concomitant]
     Active Substance: HYDROXYCHLOROQUINE SULFATE
  12. CLARINEX [Concomitant]
     Active Substance: DESLORATADINE

REACTIONS (6)
  - Joint stiffness [None]
  - Product substitution issue [None]
  - Therapy non-responder [None]
  - Arthralgia [None]
  - Product complaint [None]
  - Manufacturing materials issue [None]

NARRATIVE: CASE EVENT DATE: 20200329
